FAERS Safety Report 7988333-3 (Version None)
Quarter: 2011Q4

REPORT INFORMATION
  Report Type: 
  Country: None (occurrence: None)
  Receive Date: 20111216
  Receipt Date: 20111210
  Transmission Date: 20120403
  Serious: Yes (Hospitalization)
  Sender: FDA-Public Use
  Company Number: US-AMGEN-USACT2011065998

PATIENT
  Age: 82 Year
  Sex: Male

DRUGS (3)
  1. PLACEBO [Suspect]
     Indication: CARDIAC FAILURE
     Dosage: UNK UNK, QWK
     Route: 058
     Dates: start: 20100416
  2. BLINDED DARBEPOETIN ALFA [Suspect]
     Indication: CARDIAC FAILURE
     Dosage: UNK UNK, QWK
     Route: 058
     Dates: start: 20100416
  3. BLINDED DARBEPOETIN ALFA [Suspect]
     Dosage: UNK UNK, QWK
     Route: 058
     Dates: start: 20100416

REACTIONS (1)
  - CARDIAC FAILURE [None]
